FAERS Safety Report 11256197 (Version 1)
Quarter: 2015Q3

REPORT INFORMATION
  Report Type: Spontaneous
  Country: NL (occurrence: NL)
  Receive Date: 20150709
  Receipt Date: 20150709
  Transmission Date: 20151125
  Serious: Yes (Other)
  Sender: FDA-Public Use
  Company Number: NL-OTSUKA-DJ201502720

PATIENT
  Age: 35 Year
  Sex: Male

DRUGS (3)
  1. CISORDINOL DEPOT [Concomitant]
     Active Substance: ZUCLOPENTHIXOL
     Indication: PRODUCT USED FOR UNKNOWN INDICATION
     Route: 065
  2. ABILIFY [Suspect]
     Active Substance: ARIPIPRAZOLE
     Indication: SCHIZOPHRENIA, PARANOID TYPE
     Dosage: UNK
     Route: 048
     Dates: start: 20150120
  3. OPC-14597IMD [Suspect]
     Active Substance: ARIPIPRAZOLE
     Indication: SCHIZOPHRENIA, PARANOID TYPE
     Dosage: 400 MG, Q4WEEK
     Route: 030
     Dates: start: 20150203

REACTIONS (5)
  - Post-traumatic stress disorder [Unknown]
  - Irritability [Unknown]
  - Panic attack [Unknown]
  - Suspiciousness [Unknown]
  - Anxiety [Unknown]

NARRATIVE: CASE EVENT DATE: 201501
